FAERS Safety Report 5066856-7 (Version None)
Quarter: 2006Q3

REPORT INFORMATION
  Report Type: 
  Country: None (occurrence: None)
  Receive Date: 20060726
  Receipt Date: 20060712
  Transmission Date: 20061208
  Serious: Yes (Life-Threatening, Hospitalization)
  Sender: FDA-Public Use
  Company Number: 2005JP002322

PATIENT
  Age: 55 Year
  Sex: Female
  Weight: 47 kg

DRUGS (12)
  1. PROGRAF [Suspect]
     Indication: MYASTHENIA GRAVIS
     Dosage: 3 MG, UID/QD, ORAL
     Route: 048
     Dates: start: 20050605, end: 20050607
  2. PROGRAF [Suspect]
     Indication: MYASTHENIA GRAVIS
     Dosage: SEE IMAGE
     Route: 048
     Dates: start: 20020101, end: 20050531
  3. PROGRAF [Suspect]
     Indication: MYASTHENIA GRAVIS
     Dosage: SEE IMAGE
     Route: 048
     Dates: start: 20050601, end: 20050604
  4. PREDNISOLONE [Suspect]
     Indication: MYASTHENIA GRAVIS
     Dosage: 5 MG, UID/QD, ORAL
     Route: 048
     Dates: start: 19960101, end: 19990101
  5. PREDNISOLONE [Suspect]
     Indication: MYASTHENIA GRAVIS
     Dosage: 5 MG, UID/QD, ORAL
     Route: 048
     Dates: start: 20050101, end: 20050531
  6. PREDNISOLONE [Suspect]
     Indication: MYASTHENIA GRAVIS
     Dosage: 10 MG, UID/QD, RECTAL
     Route: 054
     Dates: start: 20050601, end: 20050604
  7. PREDNISOLONE [Suspect]
     Indication: MYASTHENIA GRAVIS
     Dosage: 10 MG, UID/QD, ORAL
     Route: 048
     Dates: start: 20050605, end: 20050607
  8. MESTINON [Suspect]
     Indication: MYASTHENIA GRAVIS
     Dosage: SEE IMAGE
     Route: 048
     Dates: start: 19890101, end: 20050531
  9. MESTINON [Suspect]
     Indication: MYASTHENIA GRAVIS
     Dosage: SEE IMAGE
     Route: 048
     Dates: start: 20050531, end: 20050604
  10. MESTINON [Suspect]
     Indication: MYASTHENIA GRAVIS
     Dosage: SEE IMAGE
     Route: 048
     Dates: start: 20050605, end: 20050607
  11. FOY (GABEXATE MESILATE) [Concomitant]
  12. ROCEPHIN [Concomitant]

REACTIONS (4)
  - ABDOMINAL ABSCESS [None]
  - ADENOCARCINOMA PANCREAS [None]
  - CHOLELITHIASIS [None]
  - ENDOCARDITIS ENTEROCOCCAL [None]
